FAERS Safety Report 8420425 (Version 2)
Quarter: 2012Q4

REPORT INFORMATION
  Report Type: 
  Country: US (occurrence: US)
  Receive Date: 20120222
  Receipt Date: 20121120
  Transmission Date: 20130627
  Serious: No
  Sender: FDA-Public Use
  Company Number: US-PFIZER INC-2012042993

PATIENT
  Age: 59 Year
  Sex: Male
  Weight: 98 kg

DRUGS (2)
  1. LYRICA [Suspect]
     Indication: NERVE PAIN
     Dosage: 150 mg, 2x/day
     Route: 048
     Dates: start: 201201, end: 20121115
  2. METHADONE [Concomitant]
     Indication: PAIN
     Dosage: UNK

REACTIONS (1)
  - Pain in extremity [Not Recovered/Not Resolved]
